FAERS Safety Report 8842077 (Version 1)
Quarter: 2012Q4

REPORT INFORMATION
  Report Type: 
  Country: US (occurrence: US)
  Receive Date: 20121016
  Receipt Date: 20121016
  Transmission Date: 20130627
  Serious: Yes (Death, Other)
  Sender: FDA-Public Use
  Company Number: US-CELGENEUS-163-21880-12091942

PATIENT
  Sex: Male

DRUGS (2)
  1. REVLIMID [Suspect]
     Indication: NON-HODGKIN^S LYMPHOMA
     Dosage: 7.5 Milligram
     Route: 048
     Dates: start: 20120913
  2. REVLIMID [Suspect]
     Indication: NON-HODGKIN^S LYMPHOMA

REACTIONS (4)
  - Death [Fatal]
  - Pallor [Unknown]
  - Nausea [Unknown]
  - Malaise [Unknown]
